FAERS Safety Report 10724747 (Version 1)
Quarter: 2015Q1

REPORT INFORMATION
  Report Type: Spontaneous
  Country: FR (occurrence: FR)
  Receive Date: 20150120
  Receipt Date: 20150120
  Transmission Date: 20150721
  Serious: Yes (Other)
  Sender: FDA-Public Use
  Company Number: FR-PFIZER INC-2015015003

PATIENT
  Age: 19 Year
  Sex: Male
  Weight: 57 kg

DRUGS (4)
  1. CLINDAMYCIN [Suspect]
     Active Substance: CLINDAMYCIN\CLINDAMYCIN PHOSPHATE
     Dosage: 600 MG, 3X/DAY
     Route: 042
     Dates: start: 20141120, end: 20141127
  2. ORBENINE [Concomitant]
     Active Substance: CLOXACILLIN SODIUM
     Indication: PROPHYLAXIS
     Dosage: 2 G, 4X/DAY
     Route: 042
  3. CONTRAMAL [Concomitant]
     Active Substance: TRAMADOL HYDROCHLORIDE
     Dosage: OCCASIONALLY
  4. LOVENOX [Concomitant]
     Active Substance: ENOXAPARIN SODIUM
     Indication: PROPHYLAXIS

REACTIONS (1)
  - Hepatocellular injury [Recovering/Resolving]

NARRATIVE: CASE EVENT DATE: 20141125
